FAERS Safety Report 9210442 (Version 2)
Quarter: 2014Q1

REPORT INFORMATION
  Report Type: Spontaneous
  Country: US (occurrence: US)
  Receive Date: 20130404
  Receipt Date: 20140124
  Transmission Date: 20141002
  Serious: Yes (Other)
  Sender: FDA-Public Use
  Company Number: US-BAYER-2013-040329

PATIENT
  Age: 24 Year
  Sex: Female

DRUGS (8)
  1. YASMIN [Suspect]
  2. NORTRIPTYLINE HCL [Concomitant]
     Dosage: 25 MG, UNK
  3. ACIPHEX [Concomitant]
     Dosage: 20 MG, UNK
  4. RELPAX [Concomitant]
     Dosage: 40 MG, UNK
  5. HYOSCYAMINE [Concomitant]
     Dosage: 0.125 MG, UNK
  6. PROMETHAZIN [Concomitant]
     Dosage: 25 MG, UNK
  7. HYDROCODONE W/APAP [Concomitant]
     Dosage: 500 MG, UNK
  8. CIPROFLOXACIN HCL [Concomitant]
     Dosage: 250 MG, UNK

REACTIONS (7)
  - Gallbladder injury [None]
  - Biliary dyskinesia [None]
  - Injury [None]
  - Pain [None]
  - Anxiety [None]
  - Fear of disease [None]
  - Anhedonia [None]
